FAERS Safety Report 9643177 (Version 1)
Quarter: 2013Q4

REPORT INFORMATION
  Report Type: Spontaneous
  Country: IL (occurrence: IL)
  Receive Date: 20131024
  Receipt Date: 20131024
  Transmission Date: 20140711
  Serious: Yes (Other)
  Sender: FDA-Public Use
  Company Number: IL-INCYTE CORPORATION-2013IN002434

PATIENT
  Age: 64 Year
  Sex: Male

DRUGS (1)
  1. JAKAVI [Suspect]
     Dosage: 10 MG, UNK
     Route: 065

REACTIONS (1)
  - Osteonecrosis [Unknown]
